FAERS Safety Report 9981876 (Version 1)
Quarter: 2014Q1

REPORT INFORMATION
  Report Type: Spontaneous
  Country: US (occurrence: None)
  Receive Date: 20140127
  Receipt Date: 20140127
  Transmission Date: 20141002
  Serious: Yes (Hospitalization)
  Sender: FDA-Public Use
  Company Number: 1201024

PATIENT
  Age: 58 Year
  Sex: Male

DRUGS (7)
  1. RITUXIMAB [Suspect]
     Indication: B-CELL LYMPHOMA
  2. CYCLOPHOSPHAMIDE (CYCLOPHOSPHAMIDE) [Suspect]
     Indication: B-CELL LYMPHOMA
  3. DOXORUBICIN (DOXORUBICIN) [Suspect]
     Indication: B-CELL LYMPHOMA
  4. PREDNISONE (PREDNISONE) [Suspect]
     Indication: B-CELL LYMPHOMA
  5. VINCRISTINE [Suspect]
     Indication: B-CELL LYMPHOMA
  6. ETOPOSIDE (ETOPOSIDE) [Suspect]
     Indication: B-CELL LYMPHOMA
  7. PROCARBAZINE [Suspect]
     Indication: B-CELL LYMPHOMA

REACTIONS (4)
  - Neutropenia [None]
  - Thrombocytopenia [None]
  - Cough [None]
  - Pyrexia [None]
